FAERS Safety Report 5451798-5 (Version None)
Quarter: 2007Q3

REPORT INFORMATION
  Report Type: 
  Country: None (occurrence: None)
  Receive Date: 20070912
  Receipt Date: 20070906
  Transmission Date: 20080115
  Serious: Yes (Death, Hospitalization)
  Sender: FDA-Public Use
  Company Number: 056-C5013-07090239

PATIENT
  Age: 51 Year
  Sex: Female
  Weight: 40 kg

DRUGS (6)
  1. CC-5013 (LENALIDOMIDE) (CAPSULES) [Suspect]
     Indication: MULTIPLE MYELOMA
     Dosage: 10 MG, DAILY, ORAL
     Route: 048
     Dates: start: 20070710, end: 20070819
  2. DEXAMETHASONE TAB [Concomitant]
  3. PHENOXYMETHYLPENICILLIN [Concomitant]
  4. ZOLOFT [Concomitant]
  5. DIANTALVIC (DI-GESIC) [Concomitant]
  6. ARANESP [Concomitant]

REACTIONS (7)
  - DYSPNOEA [None]
  - EMOTIONAL DISTRESS [None]
  - INFLAMMATION [None]
  - NO THERAPEUTIC RESPONSE [None]
  - PROTEINURIA [None]
  - RENAL FAILURE ACUTE [None]
  - THROMBOCYTOPENIA [None]
